FAERS Safety Report 5449321-4 (Version None)
Quarter: 2007Q3

REPORT INFORMATION
  Report Type: 
  Country: None (occurrence: None)
  Receive Date: 20070911
  Receipt Date: 20070831
  Transmission Date: 20080115
  Serious: Yes (Other)
  Sender: FDA-Public Use
  Company Number: US-PFIZER INC-2007062703

PATIENT
  Age: 81 Year
  Sex: Male
  Weight: 120 kg

DRUGS (4)
  1. LIPITOR [Suspect]
     Indication: HYPERCHOLESTEROLAEMIA
     Route: 048
     Dates: start: 20050801, end: 20060801
  2. LIPITOR [Suspect]
     Indication: CORONARY ARTERY BYPASS
  3. ASPIRIN [Concomitant]
  4. NORVASC [Concomitant]

REACTIONS (4)
  - AMNESIA [None]
  - COGNITIVE DISORDER [None]
  - IMPAIRED WORK ABILITY [None]
  - SPEECH DISORDER [None]
